FAERS Safety Report 6187684-5 (Version None)
Quarter: 2009Q2

REPORT INFORMATION
  Report Type: 
  Country: None (occurrence: None)
  Receive Date: 20090511
  Receipt Date: 20090504
  Transmission Date: 20091009
  Serious: Yes (Death, Other)
  Sender: FDA-Public Use
  Company Number: ES-2008-0161

PATIENT
  Sex: Female

DRUGS (2)
  1. NAVELBINE [Suspect]
     Indication: BREAST CANCER METASTATIC
     Dosage: 25 MG/M2 IV
     Route: 042
  2. CAPECITABINE [Suspect]
     Indication: BREAST CANCER METASTATIC
     Dosage: 2000 MGG/M2 PO
     Route: 048

REACTIONS (6)
  - DIARRHOEA [None]
  - METABOLIC ACIDOSIS [None]
  - NEUTROPENIA [None]
  - RENAL FAILURE ACUTE [None]
  - SEPTIC SHOCK [None]
  - SYNCOPE [None]
